FAERS Safety Report 8770956 (Version 1)
Quarter: 2012Q4

REPORT INFORMATION
  Report Type: 
  Country: BR (occurrence: BR)
  Receive Date: 20120906
  Receipt Date: 20120906
  Transmission Date: 20130627
  Serious: Yes (Other)
  Sender: FDA-Public Use
  Company Number: BR-PFIZER INC-2012216275

PATIENT
  Age: 78 Year
  Sex: Female

DRUGS (1)
  1. CELEBRA [Suspect]
     Indication: BACK PAIN
     Dosage: 200 mg, 2x/day (one capsule twice a day)
     Route: 048
     Dates: start: 2008

REACTIONS (3)
  - Road traffic accident [Unknown]
  - Bedridden [Unknown]
  - Back pain [Unknown]
